FAERS Safety Report 17498812 (Version 1)
Quarter: 2020Q1

REPORT INFORMATION
  Report Type: Spontaneous
  Country: DE (occurrence: DE)
  Receive Date: 20200304
  Receipt Date: 20200304
  Transmission Date: 20200409
  Serious: Yes (Hospitalization, Other)
  Sender: FDA-Public Use
  Company Number: DE-MYLANLABS-2020M1023136

PATIENT
  Age: 61 Year
  Sex: Female

DRUGS (1)
  1. FORMOTEROL [Suspect]
     Active Substance: FORMOTEROL
     Indication: ASTHMA
     Dosage: UNKNOWN
     Route: 055

REACTIONS (6)
  - Chronic sinusitis [Unknown]
  - Polyp [Unknown]
  - Drug intolerance [Unknown]
  - Breath sounds abnormal [Unknown]
  - Sinobronchitis [Unknown]
  - Asthma [Unknown]
